FAERS Safety Report 5470187-0 (Version None)
Quarter: 2007Q3

REPORT INFORMATION
  Report Type: 
  Country: None (occurrence: None)
  Receive Date: 20070924
  Receipt Date: 20070907
  Transmission Date: 20080115
  Serious: Yes (Other)
  Sender: FDA-Public Use
  Company Number: 2007RR-09894

PATIENT
  Age: 23 Month
  Sex: Female
  Weight: 14.3 kg

DRUGS (8)
  1. MIDAZOLAM HYDROCHLORIDE [Suspect]
     Indication: AMNESIA
     Dosage: 0.5 UNK, MG/H
  2. MIDAZOLAM HYDROCHLORIDE [Suspect]
     Indication: ANALGESIA
     Dosage: 0.5 UNK, MG/H
  3. THIOPENTAL SODIUM [Suspect]
     Indication: GENERAL ANAESTHESIA
     Dosage: 50 MG, UNK, INTRAVENOUS
     Route: 042
  4. SUXAMETHONIUM CHLORIDE(SUCAMETHONIUM CHLORIDE) [Suspect]
     Indication: GENERAL ANAESTHESIA
     Dosage: 30 MG
  5. VECURONIUM BROMIDE [Suspect]
     Indication: GENERAL ANAESTHESIA
     Dosage: 2 MG
  6. MORPHINE [Suspect]
     Indication: AMNESIA
     Dosage: 0.28 MG/H
  7. MORPHINE [Suspect]
     Indication: ANALGESIA
     Dosage: 0.28 MG/H
  8. SUCCINYLCHLOLINE CHLORIDE INJ [Suspect]
     Indication: GENERAL ANAESTHESIA
     Dosage: 30 MG

REACTIONS (6)
  - ANAESTHETIC COMPLICATION [None]
  - ATRIOVENTRICULAR BLOCK FIRST DEGREE [None]
  - BRADYCARDIA [None]
  - ELECTROCARDIOGRAM QRS COMPLEX PROLONGED [None]
  - PROCEDURAL COMPLICATION [None]
  - PULSE ABSENT [None]
